FAERS Safety Report 10932574 (Version 1)
Quarter: 2015Q1

REPORT INFORMATION
  Report Type: Spontaneous
  Country: US (occurrence: None)
  Receive Date: 20150319
  Receipt Date: 20150319
  Transmission Date: 20150721
  Serious: Yes (Disabling)
  Sender: FDA-Public Use
  Company Number: None

PATIENT
  Age: 46 Year
  Sex: Female
  Weight: 68.04 kg

DRUGS (10)
  1. ZOCOR [Concomitant]
     Active Substance: SIMVASTATIN
  2. COQ10 [Concomitant]
     Active Substance: UBIDECARENONE
  3. KLONOPIN [Concomitant]
     Active Substance: CLONAZEPAM
  4. VITAMINS [Concomitant]
     Active Substance: VITAMINS
  5. BENICAR HCT [Suspect]
     Active Substance: HYDROCHLOROTHIAZIDE\OLMESARTAN MEDOXOMIL
     Indication: HYPERTENSION
     Dosage: 1 DAILY
     Route: 048
  6. FLONASE [Concomitant]
     Active Substance: FLUTICASONE PROPIONATE
  7. TYLENOL [Concomitant]
     Active Substance: ACETAMINOPHEN
  8. TRILIPTAL [Concomitant]
  9. ZYRTEC [Concomitant]
     Active Substance: CETIRIZINE HYDROCHLORIDE
  10. ADVAIR HFA [Concomitant]
     Active Substance: FLUTICASONE PROPIONATE\SALMETEROL XINAFOATE

REACTIONS (3)
  - Diarrhoea [None]
  - Diverticulitis [None]
  - Polyp [None]
